FAERS Safety Report 4751068-4 (Version None)
Quarter: 2005Q3

REPORT INFORMATION
  Report Type: 
  Country: None (occurrence: None)
  Receive Date: 20050822
  Receipt Date: 20050808
  Transmission Date: 20060218
  Serious: Yes (Other)
  Sender: FDA-Public Use
  Company Number: 200504039

PATIENT
  Age: 14 Year
  Sex: Female
  Weight: 50.3493 kg

DRUGS (2)
  1. TAZORAC [Suspect]
     Indication: ACNE
     Dates: start: 20041201, end: 20050401
  2. DOXYCYCLINE [Suspect]
     Indication: ACNE
     Dates: start: 20050101, end: 20050301

REACTIONS (6)
  - BENIGN INTRACRANIAL HYPERTENSION [None]
  - BRAIN OEDEMA [None]
  - DRUG INEFFECTIVE [None]
  - DRUG INTOLERANCE [None]
  - MYDRIASIS [None]
  - POST PROCEDURAL COMPLICATION [None]
